FAERS Safety Report 17521161 (Version 1)
Quarter: 2020Q1

REPORT INFORMATION
  Report Type: Report from Study
  Country: CA (occurrence: CA)
  Receive Date: 20200310
  Receipt Date: 20200310
  Transmission Date: 20200409
  Serious: Yes (Death, Other)
  Sender: FDA-Public Use
  Company Number: CA-MYLANLABS-2019M1133123

PATIENT
  Age: 63 Year
  Sex: Male
  Weight: 89 kg

DRUGS (1)
  1. CLOZAPINE. [Suspect]
     Active Substance: CLOZAPINE
     Indication: PRODUCT USED FOR UNKNOWN INDICATION
     Dosage: UNK
     Dates: start: 201003

REACTIONS (2)
  - Cardiac disorder [Fatal]
  - Pneumonia [Unknown]

NARRATIVE: CASE EVENT DATE: 20191219
